FAERS Safety Report 23340051 (Version 1)
Quarter: 2023Q4

REPORT INFORMATION
  Report Type: Spontaneous
  Country: US (occurrence: US)
  Receive Date: 20231227
  Receipt Date: 20231227
  Transmission Date: 20240110
  Serious: No
  Sender: FDA-Public Use
  Company Number: US-BRISTOL-MYERS SQUIBB COMPANY-2023-183514

PATIENT
  Age: 64 Year
  Sex: Male
  Weight: 66.1 kg

DRUGS (1)
  1. ISTODAX [Suspect]
     Active Substance: ROMIDEPSIN
     Indication: Lymphoma
     Dosage: DOSE : 25.5 MG;     FREQ : DAY 1, DAY 8 AND DAY 15 WITH A TWO-WEEK BREAK
     Route: 042
     Dates: start: 202105, end: 202107

REACTIONS (1)
  - Prescribed overdose [Unknown]
